FAERS Safety Report 6371979-6 (Version None)
Quarter: 2009Q3

REPORT INFORMATION
  Report Type: 
  Country: None (occurrence: None)
  Receive Date: 20090917
  Receipt Date: 20090904
  Transmission Date: 20100115
  Serious: Yes (Hospitalization, Disabling)
  Sender: FDA-Public Use
  Company Number: ADR19122009

PATIENT
  Age: 71 Year
  Sex: Female

DRUGS (6)
  1. SALBUTAMOL (MFR: UNKNOWN) [Suspect]
     Indication: CHRONIC OBSTRUCTIVE PULMONARY DISEASE
  2. ATROVENT [Concomitant]
  3. SERETIDE [Concomitant]
  4. ADCAL-D3 [Concomitant]
  5. AMLODIPINE [Concomitant]
  6. TEMAZEPAM [Concomitant]

REACTIONS (3)
  - EMPHYSEMA [None]
  - INCREASED UPPER AIRWAY SECRETION [None]
  - PNEUMONIA [None]
